FAERS Safety Report 20617902 (Version 6)
Quarter: 2022Q3

REPORT INFORMATION
  Report Type: Report from Study
  Country: US (occurrence: US)
  Receive Date: 20220321
  Receipt Date: 20220824
  Transmission Date: 20221027
  Serious: Yes (Hospitalization, Other)
  Sender: FDA-Public Use
  Company Number: US-TAKEDA-2022TUS008231

PATIENT
  Age: 34 Year
  Sex: Male

DRUGS (3)
  1. ADVATE [Suspect]
     Active Substance: ANTIHEMOPHILIC FACTOR, HUMAN RECOMBINANT
     Indication: Haemorrhage
     Dosage: 4000 INTERNATIONAL UNIT
     Route: 042
  2. ADVATE [Suspect]
     Active Substance: ANTIHEMOPHILIC FACTOR, HUMAN RECOMBINANT
     Indication: Haemorrhage
     Dosage: 4000 INTERNATIONAL UNIT
     Route: 042
  3. ADVATE [Suspect]
     Active Substance: ANTIHEMOPHILIC FACTOR, HUMAN RECOMBINANT
     Indication: Haemorrhage
     Dosage: 4000 INTERNATIONAL UNIT
     Route: 042

REACTIONS (14)
  - Loss of consciousness [Unknown]
  - Seizure [Unknown]
  - Lower gastrointestinal haemorrhage [Unknown]
  - Haemarthrosis [Recovered/Resolved]
  - Haemorrhage [Recovered/Resolved]
  - Road traffic accident [Unknown]
  - Sinusitis [Recovered/Resolved]
  - Paraesthesia [Unknown]
  - Concussion [Unknown]
  - Joint swelling [Unknown]
  - Gait disturbance [Unknown]
  - Overwork [Unknown]
  - Feeling abnormal [Unknown]
  - Head injury [Unknown]

NARRATIVE: CASE EVENT DATE: 20220130
